FAERS Safety Report 5254829-0 (Version None)
Quarter: 2007Q1

REPORT INFORMATION
  Report Type: 
  Country: None (occurrence: None)
  Receive Date: 20070305
  Receipt Date: 20070219
  Transmission Date: 20070707
  Serious: Yes (Death, Hospitalization, Other)
  Sender: FDA-Public Use
  Company Number: JP-ELI_LILLY_AND_COMPANY-US_010974040

PATIENT
  Age: 32 Year
  Sex: Male
  Weight: 66 kg

DRUGS (5)
  1. ZYPREXA [Suspect]
     Indication: SCHIZOPHRENIA
     Dosage: 10 MG, DAILY (1/D)
     Route: 048
     Dates: start: 20010827, end: 20010913
  2. RISPERDAL [Concomitant]
     Indication: SCHIZOPHRENIA
     Dosage: 1 MG, DAILY (1/D)
     Route: 048
     Dates: start: 20000203, end: 20010913
  3. ARTANE [Concomitant]
     Dosage: 2 MG, DAILY (1/D)
     Route: 048
     Dates: start: 20001211, end: 20010913
  4. ROHYPNOL [Concomitant]
     Indication: SCHIZOPHRENIA
     Dosage: 2 MG, DAILY (1/D)
     Route: 048
     Dates: start: 20000108, end: 20010913
  5. HALCION [Concomitant]
     Indication: SCHIZOPHRENIA
     Dosage: 0.25 MG, DAILY (1/D)
     Route: 048
     Dates: start: 20000405, end: 20010913

REACTIONS (12)
  - ACUTE TONSILLITIS [None]
  - BLOOD CREATININE INCREASED [None]
  - C-REACTIVE PROTEIN INCREASED [None]
  - CONVULSION [None]
  - DIABETIC HYPEROSMOLAR COMA [None]
  - DIABETIC KETOACIDOSIS [None]
  - HYPERNATRAEMIA [None]
  - HYPERURICAEMIA [None]
  - HYPOKALAEMIA [None]
  - HYPONATRAEMIA [None]
  - METABOLIC ACIDOSIS [None]
  - RENAL FAILURE [None]
